FAERS Safety Report 7741579-1 (Version None)
Quarter: 2011Q3

REPORT INFORMATION
  Report Type: 
  Country: None (occurrence: None)
  Receive Date: 20110909
  Receipt Date: 20110831
  Transmission Date: 20111222
  Serious: Yes (Hospitalization, Other)
  Sender: FDA-Public Use
  Company Number: US-ASTRAZENECA-2011SE52308

PATIENT
  Age: 51 Year
  Sex: Female

DRUGS (1)
  1. CRESTOR [Suspect]
     Route: 048
     Dates: start: 20110801

REACTIONS (5)
  - MUSCLE ATROPHY [None]
  - SWELLING FACE [None]
  - RHABDOMYOLYSIS [None]
  - OEDEMA PERIPHERAL [None]
  - ABNORMAL BEHAVIOUR [None]
